FAERS Safety Report 14605581 (Version 2)
Quarter: 2018Q3

REPORT INFORMATION
  Report Type: Spontaneous
  Country: US (occurrence: US)
  Receive Date: 20180306
  Receipt Date: 20180713
  Transmission Date: 20181010
  Serious: No
  Sender: FDA-Public Use
  Company Number: US-INTERCEPT-PMOCA2017001755

PATIENT

DRUGS (3)
  1. OCALIVA [Suspect]
     Active Substance: OBETICHOLIC ACID
     Dosage: 5 MG, QOD
  2. OCALIVA [Suspect]
     Active Substance: OBETICHOLIC ACID
     Indication: PRIMARY BILIARY CHOLANGITIS
     Dosage: 5 MG, QD
     Route: 048
     Dates: start: 20171202
  3. OCALIVA [Suspect]
     Active Substance: OBETICHOLIC ACID
     Dosage: 5 MG, QD
     Route: 048
     Dates: start: 2018, end: 20180430

REACTIONS (10)
  - Gamma-glutamyltransferase abnormal [Recovering/Resolving]
  - Erythema [Recovering/Resolving]
  - Faeces pale [Unknown]
  - Hypertension [Recovering/Resolving]
  - Blood alkaline phosphatase increased [Recovering/Resolving]
  - Dyspnoea exertional [Recovering/Resolving]
  - Arthralgia [Unknown]
  - Arthritis [Unknown]
  - Back pain [Recovering/Resolving]
  - Myalgia [Recovering/Resolving]

NARRATIVE: CASE EVENT DATE: 20180220
